FAERS Safety Report 5690081-X (Version None)
Quarter: 2008Q1

REPORT INFORMATION
  Report Type: 
  Country: None (occurrence: None)
  Receive Date: 20080331
  Receipt Date: 20080331
  Transmission Date: 20080703
  Serious: Yes (Hospitalization, Other)
  Sender: FDA-Public Use
  Company Number: None

PATIENT
  Age: 17 Year
  Sex: Female
  Weight: 48.0813 kg

DRUGS (1)
  1. SINGULAIR [Suspect]
     Indication: ASTHMA
     Dosage: 1 TABLET 1 PER DAY PO
     Route: 048
     Dates: start: 20000822, end: 20070610

REACTIONS (3)
  - DEPRESSION [None]
  - SUICIDAL IDEATION [None]
  - TREMOR [None]
